FAERS Safety Report 10703705 (Version 1)
Quarter: 2015Q1

REPORT INFORMATION
  Report Type: Spontaneous
  Country: AU (occurrence: None)
  Receive Date: 20150108
  Receipt Date: 20150108
  Transmission Date: 20150721
  Serious: Yes (Other)
  Sender: FDA-Public Use
  Company Number: AU-2014VAL000698

PATIENT
  Age: 22 Year
  Sex: Male

DRUGS (1)
  1. METOPROLOL TARTRATE (METOPROLOL TARTRATE) (METOPROLOL TARTRATE) [Suspect]
     Active Substance: METOPROLOL TARTRATE
     Indication: ATRIAL FIBRILLATION
     Route: 048

REACTIONS (3)
  - Heart rate increased [None]
  - Product quality issue [None]
  - Drug ineffective [None]
